FAERS Safety Report 19905628 (Version 3)
Quarter: 2021Q4

REPORT INFORMATION
  Report Type: Report from Study
  Country: US (occurrence: US)
  Receive Date: 20210930
  Receipt Date: 20211221
  Transmission Date: 20220303
  Serious: Yes (Hospitalization, Other)
  Sender: FDA-Public Use
  Company Number: US-TAKEDA-2021TUS060560

PATIENT
  Sex: Female

DRUGS (8)
  1. TEDUGLUTIDE [Suspect]
     Active Substance: TEDUGLUTIDE
     Indication: Short-bowel syndrome
     Dosage: 0.4300
     Route: 058
     Dates: start: 20190425
  2. TEDUGLUTIDE [Suspect]
     Active Substance: TEDUGLUTIDE
     Indication: Short-bowel syndrome
     Dosage: 0.4300
     Route: 058
     Dates: start: 20190425
  3. TEDUGLUTIDE [Suspect]
     Active Substance: TEDUGLUTIDE
     Indication: Short-bowel syndrome
     Dosage: 0.4300
     Route: 058
     Dates: start: 20190425
  4. TEDUGLUTIDE [Suspect]
     Active Substance: TEDUGLUTIDE
     Indication: Short-bowel syndrome
     Dosage: 0.4300
     Route: 058
     Dates: start: 20190425
  5. TEDUGLUTIDE [Suspect]
     Active Substance: TEDUGLUTIDE
     Dosage: 0.430 UNK
     Route: 058
     Dates: start: 202011
  6. TEDUGLUTIDE [Suspect]
     Active Substance: TEDUGLUTIDE
     Dosage: 0.430 UNK
     Route: 058
     Dates: start: 202011
  7. TEDUGLUTIDE [Suspect]
     Active Substance: TEDUGLUTIDE
     Dosage: 0.430 UNK
     Route: 058
     Dates: start: 202011
  8. TEDUGLUTIDE [Suspect]
     Active Substance: TEDUGLUTIDE
     Dosage: 0.430 UNK
     Route: 058
     Dates: start: 202011

REACTIONS (4)
  - Thrombosis [Not Recovered/Not Resolved]
  - Sepsis [Recovered/Resolved]
  - Bladder cancer [Not Recovered/Not Resolved]
  - Therapy interrupted [Not Recovered/Not Resolved]
